FAERS Safety Report 9538311 (Version 2)
Quarter: 2013Q4

REPORT INFORMATION
  Report Type: Spontaneous
  Country: US (occurrence: US)
  Receive Date: 20130920
  Receipt Date: 20131211
  Transmission Date: 20140711
  Serious: Yes (Other)
  Sender: FDA-Public Use
  Company Number: US-JNJFOC-20130903894

PATIENT
  Age: 7 Month
  Sex: Male
  Weight: 8.62 kg

DRUGS (2)
  1. CONCENTRATED MOTRIN INFANTS^ DROPS BERRY FLAVOR [Suspect]
     Indication: TEETHING
     Dosage: AT NIGHT
     Route: 048
     Dates: start: 20130903, end: 20130903
  2. CONCENTRATED MOTRIN INFANTS^ DROPS BERRY FLAVOR [Suspect]
     Indication: PYREXIA
     Dosage: AT NIGHT
     Route: 048
     Dates: start: 20130903, end: 20130903

REACTIONS (3)
  - Haematochezia [Recovered/Resolved]
  - Faeces discoloured [Recovered/Resolved]
  - Product quality issue [Unknown]
